FAERS Safety Report 23809524 (Version 4)
Quarter: 2024Q3

REPORT INFORMATION
  Report Type: Spontaneous
  Country: US (occurrence: US)
  Receive Date: 20240502
  Receipt Date: 20240725
  Transmission Date: 20241016
  Serious: Yes (Other)
  Sender: CALLIDITAS THERAPEUTICS
  Company Number: US-Calliditas-2024CAL00677

PATIENT
  Age: 57 Year
  Sex: Male

DRUGS (1)
  1. TARPEYO [Suspect]
     Active Substance: BUDESONIDE
     Indication: Haematuria
     Route: 048
     Dates: start: 20240328

REACTIONS (4)
  - Blood pressure increased [Not Recovered/Not Resolved]
  - Full blood count abnormal [Recovering/Resolving]
  - Abdominal abscess [Unknown]
  - Folliculitis [Unknown]

NARRATIVE: CASE EVENT DATE: 20240428
